FAERS Safety Report 7593802-4 (Version None)
Quarter: 2011Q3

REPORT INFORMATION
  Report Type: 
  Country: None (occurrence: None)
  Receive Date: 20110706
  Receipt Date: 20110624
  Transmission Date: 20111222
  Serious: Yes (Hospitalization)
  Sender: FDA-Public Use
  Company Number: PHHY2011TW56322

PATIENT
  Sex: Female

DRUGS (2)
  1. EXJADE [Suspect]
     Dosage: 875 MG, UNK
     Route: 048
  2. EXJADE [Suspect]
     Indication: THALASSAEMIA
     Dosage: 1250 MG DAILY
     Route: 048

REACTIONS (1)
  - INFECTIOUS PERITONITIS [None]
